FAERS Safety Report 8428064-9 (Version None)
Quarter: 2012Q2

REPORT INFORMATION
  Report Type: 
  Country: None (occurrence: None)
  Receive Date: 20120611
  Receipt Date: 20120601
  Transmission Date: 20120825
  Serious: Yes (Other)
  Sender: FDA-Public Use
  Company Number: FR-ASTRAZENECA-2012SE37515

PATIENT
  Age: 45 Year
  Sex: Female

DRUGS (2)
  1. FASLODEX [Suspect]
     Indication: BREAST CANCER
     Route: 030
  2. FASLODEX [Suspect]
     Route: 030

REACTIONS (4)
  - PARAESTHESIA ORAL [None]
  - MALAISE [None]
  - NEUROTOXICITY [None]
  - FEELING HOT [None]
